FAERS Safety Report 20670443 (Version 1)
Quarter: 2022Q2

REPORT INFORMATION
  Report Type: Spontaneous
  Country: US (occurrence: US)
  Receive Date: 20220404
  Receipt Date: 20220404
  Transmission Date: 20220721
  Serious: No
  Sender: FDA-Public Use
  Company Number: US-ALKERMES INC.-ALK-2022-001540

PATIENT
  Sex: Female
  Weight: 46.712 kg

DRUGS (1)
  1. VIVITROL [Suspect]
     Active Substance: NALTREXONE
     Indication: Dependence
     Dosage: 380 MILLIGRAM, QMO
     Route: 030

REACTIONS (4)
  - Feeling abnormal [Recovered/Resolved]
  - Stress [Not Recovered/Not Resolved]
  - Underweight [Not Recovered/Not Resolved]
  - Weight decreased [Not Recovered/Not Resolved]
